FAERS Safety Report 7752817-3 (Version None)
Quarter: 2011Q3

REPORT INFORMATION
  Report Type: 
  Country: None (occurrence: None)
  Receive Date: 20110915
  Receipt Date: 20110907
  Transmission Date: 20111222
  Serious: Yes (Hospitalization)
  Sender: FDA-Public Use
  Company Number: PHHY2011US28751

PATIENT
  Age: 52 Year
  Sex: Female

DRUGS (1)
  1. TOBI [Suspect]
     Dosage: 300 MG, BID, 14 DAYS ON AND 14 DAYS OFF
     Dates: start: 20110731

REACTIONS (1)
  - UPPER RESPIRATORY TRACT INFECTION [None]
